FAERS Safety Report 7254494-7 (Version None)
Quarter: 2011Q1

REPORT INFORMATION
  Report Type: 
  Country: None (occurrence: None)
  Receive Date: 20110129
  Receipt Date: 20100412
  Transmission Date: 20110831
  Serious: No
  Sender: FDA-Public Use
  Company Number: US-ABBOTT-10P-163-0638999-00

PATIENT
  Sex: Female

DRUGS (3)
  1. HUMIRA [Suspect]
     Indication: CROHN'S DISEASE
     Dates: start: 20100409, end: 20100409
  2. NEXIUM [Concomitant]
     Indication: CROHN'S DISEASE
  3. BENTYL [Concomitant]
     Indication: CROHN'S DISEASE

REACTIONS (1)
  - ABDOMINAL PAIN UPPER [None]
